FAERS Safety Report 4612380-2 (Version None)
Quarter: 2005Q1

REPORT INFORMATION
  Report Type: 
  Country: None (occurrence: None)
  Receive Date: 20050316
  Receipt Date: 20050301
  Transmission Date: 20050727
  Serious: Yes (Other)
  Sender: FDA-Public Use
  Company Number: USA050392120

PATIENT
  Age: 86 Year
  Sex: Female

DRUGS (2)
  1. FORTEO [Suspect]
     Indication: OSTEOPOROSIS
     Dates: start: 20030307, end: 20050110
  2. HYDROCODONE [Concomitant]

REACTIONS (7)
  - ABASIA [None]
  - BACK PAIN [None]
  - BONE DENSITY DECREASED [None]
  - CONDITION AGGRAVATED [None]
  - DEMENTIA [None]
  - FALL [None]
  - PHARMACEUTICAL PRODUCT COMPLAINT [None]
